FAERS Safety Report 17221419 (Version 1)
Quarter: 2020Q1

REPORT INFORMATION
  Report Type: Spontaneous
  Country: US (occurrence: US)
  Receive Date: 20200101
  Receipt Date: 20200101
  Transmission Date: 20200409
  Serious: Yes (Life-Threatening, Hospitalization, Disabling)
  Sender: FDA-Public Use
  Company Number: US-ROCHE-2511728

PATIENT
  Age: 61 Year
  Sex: Female

DRUGS (1)
  1. XOLAIR [Suspect]
     Active Substance: OMALIZUMAB
     Indication: ASTHMA
     Route: 058
     Dates: start: 20170101

REACTIONS (3)
  - Blood sodium decreased [Recovering/Resolving]
  - Myocardial infarction [Recovering/Resolving]
  - Nephrectomy [Unknown]

NARRATIVE: CASE EVENT DATE: 20191110
